FAERS Safety Report 9202624 (Version 1)
Quarter: 2013Q2

REPORT INFORMATION
  Report Type: Spontaneous
  Country: TW (occurrence: TW)
  Receive Date: 20130401
  Receipt Date: 20130401
  Transmission Date: 20140414
  Serious: Yes (Life-Threatening, Hospitalization, Other)
  Sender: FDA-Public Use
  Company Number: TW-WATSON-2013-05069

PATIENT
  Age: 55 Year
  Sex: Male

DRUGS (2)
  1. BACLOFEN [Suspect]
     Indication: INTENTIONAL OVERDOSE
     Dosage: 420 MG, SINGLE
     Route: 065
  2. IRBESARTAN (UNKNOWN) [Suspect]
     Indication: INTENTIONAL OVERDOSE
     Dosage: 1050 MG, SINGLE
     Route: 065

REACTIONS (6)
  - Coma [Recovered/Resolved]
  - Respiratory depression [Recovered/Resolved]
  - Hypotonia [Recovered/Resolved]
  - Hyporeflexia [Recovered/Resolved]
  - Leukocytosis [Recovered/Resolved]
  - Intentional overdose [Recovered/Resolved]
